FAERS Safety Report 14793995 (Version 2)
Quarter: 2018Q2

REPORT INFORMATION
  Report Type: Report from Study
  Country: CO (occurrence: CO)
  Receive Date: 20180423
  Receipt Date: 20180518
  Transmission Date: 20180711
  Serious: Yes (Death, Hospitalization)
  Sender: FDA-Public Use
  Company Number: CO-UCBSA-2018016925

PATIENT
  Age: 75 Year
  Sex: Female

DRUGS (2)
  1. LACOSAMIDE. [Suspect]
     Active Substance: LACOSAMIDE
     Indication: EPILEPSY
     Dosage: 200 MG, 2X/DAY (BID)
     Route: 048
     Dates: start: 20180319, end: 20180402
  2. LACOSAMIDE. [Suspect]
     Active Substance: LACOSAMIDE
     Indication: EPILEPSY
     Dosage: 200 MG, 2X/DAY (BID)
     Route: 048
     Dates: start: 20180215, end: 20180315

REACTIONS (3)
  - Cardio-respiratory arrest [Fatal]
  - Seizure [Fatal]
  - Blood pressure increased [Fatal]

NARRATIVE: CASE EVENT DATE: 20180331
